FAERS Safety Report 5782801-0 (Version None)
Quarter: 2008Q2

REPORT INFORMATION
  Report Type: 
  Country: None (occurrence: None)
  Receive Date: 20080624
  Receipt Date: 20080612
  Transmission Date: 20081010
  Serious: No
  Sender: FDA-Public Use
  Company Number: US-BAYER-200825634NA

PATIENT
  Age: 36 Year
  Sex: Female
  Weight: 58 kg

DRUGS (1)
  1. YAZ [Suspect]
     Indication: CONTRACEPTION
     Dosage: TOTAL DAILY DOSE: 1 DF
     Route: 048

REACTIONS (5)
  - ABDOMINAL DISTENSION [None]
  - INCREASED APPETITE [None]
  - MENSTRUATION DELAYED [None]
  - NAUSEA [None]
  - WEIGHT INCREASED [None]
